FAERS Safety Report 6899800-8 (Version None)
Quarter: 2010Q3

REPORT INFORMATION
  Report Type: 
  Country: None (occurrence: None)
  Receive Date: 20100708
  Receipt Date: 20090706
  Transmission Date: 20110219
  Serious: Yes (Other)
  Sender: FDA-Public Use
  Company Number: 2009238285

PATIENT
  Age: 54 Year
  Sex: Female
  Weight: 104.3 kg

DRUGS (8)
  1. CHANTIX [Suspect]
     Indication: SMOKING CESSATION THERAPY
     Dosage: FREQUENCY: 2X/DAY, EVERY DAAY;
     Dates: start: 20090601
  2. ATENOLOL [Concomitant]
  3. PROTONIX [Concomitant]
  4. AVANDAMET [Concomitant]
  5. CELEBREX [Concomitant]
  6. CYMBALTA [Concomitant]
  7. VESICARE [Concomitant]
  8. SIMVASTATIN [Concomitant]

REACTIONS (3)
  - DEPRESSION [None]
  - LETHARGY [None]
  - PARANOIA [None]
